FAERS Safety Report 22335603 (Version 1)
Quarter: 2023Q2

REPORT INFORMATION
  Report Type: Spontaneous
  Country: US (occurrence: US)
  Receive Date: 20230518
  Receipt Date: 20230518
  Transmission Date: 20230721
  Serious: No
  Sender: FDA-Public Use
  Company Number: US-ELI_LILLY_AND_COMPANY-US202305008340

PATIENT
  Age: 54 Year
  Sex: Female

DRUGS (10)
  1. MOUNJARO [Suspect]
     Active Substance: TIRZEPATIDE
     Indication: Glycosylated haemoglobin
     Dosage: 15 MG, UNKNOWN
     Route: 058
     Dates: start: 202209
  2. MOUNJARO [Suspect]
     Active Substance: TIRZEPATIDE
     Indication: Blood pressure increased
  3. MOUNJARO [Suspect]
     Active Substance: TIRZEPATIDE
     Indication: Overweight
  4. MOUNJARO [Suspect]
     Active Substance: TIRZEPATIDE
     Indication: Glycosylated haemoglobin
     Dosage: UNK, UNKNOWN
     Route: 058
     Dates: start: 202209
  5. MOUNJARO [Suspect]
     Active Substance: TIRZEPATIDE
     Indication: Blood pressure increased
  6. MOUNJARO [Suspect]
     Active Substance: TIRZEPATIDE
     Indication: Overweight
  7. MOUNJARO [Suspect]
     Active Substance: TIRZEPATIDE
     Indication: Glycosylated haemoglobin
     Dosage: 12.5 MG, UNKNOWN
     Route: 058
     Dates: start: 202209
  8. MOUNJARO [Suspect]
     Active Substance: TIRZEPATIDE
     Indication: Hypertension
  9. MOUNJARO [Suspect]
     Active Substance: TIRZEPATIDE
     Indication: Overweight
  10. BOTOX [Concomitant]
     Active Substance: ONABOTULINUMTOXINA
     Indication: Product used for unknown indication

REACTIONS (5)
  - Rash pruritic [Recovering/Resolving]
  - Hunger [Not Recovered/Not Resolved]
  - Off label use [Unknown]
  - Injection site haemorrhage [Unknown]
  - Injection site pain [Unknown]

NARRATIVE: CASE EVENT DATE: 20230501
